FAERS Safety Report 25167107 (Version 1)
Quarter: 2025Q2

REPORT INFORMATION
  Report Type: Spontaneous
  Country: MA (occurrence: MA)
  Receive Date: 20250407
  Receipt Date: 20250407
  Transmission Date: 20250717
  Serious: Yes (Hospitalization, Disabling, Other)
  Sender: Norvium Bioscience
  Company Number: MA-Norvium Bioscience LLC-080034

PATIENT
  Age: 68 Year
  Sex: Male

DRUGS (1)
  1. AMIODARONE HYDROCHLORIDE [Suspect]
     Active Substance: AMIODARONE HYDROCHLORIDE
     Indication: Heart rate irregular
     Dates: start: 2021

REACTIONS (2)
  - Demyelinating polyneuropathy [Recovered/Resolved]
  - Toxicity to various agents [Unknown]
